FAERS Safety Report 21297352 (Version 1)
Quarter: 2022Q3

REPORT INFORMATION
  Report Type: Report from Study
  Country: US (occurrence: US)
  Receive Date: 20220906
  Receipt Date: 20220906
  Transmission Date: 20221026
  Serious: Yes (Other)
  Sender: FDA-Public Use
  Company Number: US-BRISTOL-MYERS SQUIBB COMPANY-2022-082792

PATIENT
  Age: 66 Year
  Sex: Male
  Weight: 68.95 kg

DRUGS (2)
  1. REVLIMID [Suspect]
     Active Substance: LENALIDOMIDE
     Indication: Plasma cell myeloma
     Dosage: 1 CAPSULE NIGHTLY AT BEDTIME
     Route: 048
     Dates: start: 20220708
  2. VELCADE [Concomitant]
     Active Substance: BORTEZOMIB
     Indication: Product used for unknown indication
     Route: 065

REACTIONS (4)
  - Rectal haemorrhage [Unknown]
  - Thrombosis [Unknown]
  - Diverticulitis [Unknown]
  - Spinal fracture [Unknown]

NARRATIVE: CASE EVENT DATE: 20220720
